FAERS Safety Report 5372883-2 (Version None)
Quarter: 2007Q2

REPORT INFORMATION
  Report Type: 
  Country: None (occurrence: None)
  Receive Date: 20070621
  Receipt Date: 20070406
  Transmission Date: 20071010
  Serious: No
  Sender: FDA-Public Use
  Company Number: US-CVT-070082

PATIENT
  Age: 89 Year
  Sex: Male

DRUGS (7)
  1. RANEXA [Suspect]
     Indication: ANGINA PECTORIS
     Dosage: 500 MG, BID, ORAL
     Route: 048
     Dates: start: 20070323, end: 20070402
  2. ATENOLOL [Concomitant]
  3. ISOSORBIDE (ISOSORBIDE) [Concomitant]
  4. NITROGLYCERIN [Concomitant]
  5. LIPITOR [Concomitant]
  6. ASPIRIN [Concomitant]
  7. FOLIC ACID [Concomitant]

REACTIONS (2)
  - DIZZINESS [None]
  - FALL [None]
